FAERS Safety Report 12386745 (Version 1)
Quarter: 2016Q2

REPORT INFORMATION
  Report Type: Spontaneous
  Country: FR (occurrence: FR)
  Receive Date: 20160519
  Receipt Date: 20160519
  Transmission Date: 20160815
  Serious: Yes (Other)
  Sender: FDA-Public Use
  Company Number: FR-PFIZER INC-2016267790

PATIENT
  Age: 44 Year
  Sex: Male

DRUGS (1)
  1. PAMIDRONATE DISODIUM. [Suspect]
     Active Substance: PAMIDRONATE DISODIUM
     Indication: COMPLEX REGIONAL PAIN SYNDROME
     Dosage: 60 MG, SINGLE
     Route: 041
     Dates: start: 20160114, end: 20160114

REACTIONS (1)
  - Lymphangitis [Recovered/Resolved]

NARRATIVE: CASE EVENT DATE: 20160114
